FAERS Safety Report 9783371 (Version 1)
Quarter: 2013Q4

REPORT INFORMATION
  Report Type: Spontaneous
  Country: US (occurrence: US)
  Receive Date: 20131226
  Receipt Date: 20131226
  Transmission Date: 20140711
  Serious: Yes (Hospitalization)
  Sender: FDA-Public Use
  Company Number: US-BAYER-2013-156696

PATIENT
  Age: 30 Year
  Sex: Female
  Weight: 78 kg

DRUGS (13)
  1. YAZ [Suspect]
  2. ALBUTEROL [Concomitant]
     Dosage: 90 MCG
     Dates: start: 20090909
  3. MIDRIN [Concomitant]
     Indication: MIGRAINE
     Dosage: 1 TAB EVERY 4 HOURS AS NEEDED
     Dates: start: 20090909
  4. AZITHROMYCIN [Concomitant]
     Dosage: 250 MG, UNK
     Dates: start: 20090909
  5. LEXAPRO [Concomitant]
     Indication: DEPRESSION
     Dosage: 10 MG, DAILY
     Dates: start: 20090909
  6. DOXYCYCLINE [Concomitant]
     Dosage: 20 MG, UNK
     Dates: start: 20090621
  7. DOXYCYCLINE [Concomitant]
     Dosage: 20 MG, UNK
     Dates: start: 20090818
  8. DIFFERIN [Concomitant]
     Dosage: 0.3 %, UNK
     Dates: start: 20090621
  9. DIFFERIN [Concomitant]
     Dosage: 0.3 %, UNK
     Dates: start: 20090801
  10. NORCO [Concomitant]
  11. ACETAMINOPHEN [Concomitant]
     Dosage: 650 MG, UNK
     Route: 048
  12. CITALOPRAM [Concomitant]
     Dosage: 10 MG,EVERY DAY
     Route: 048
  13. ZYRTEC [Concomitant]

REACTIONS (1)
  - Pulmonary embolism [None]
